FAERS Safety Report 13917796 (Version 1)
Quarter: 2017Q3

REPORT INFORMATION
  Report Type: Spontaneous
  Country: FR (occurrence: FR)
  Receive Date: 20170829
  Receipt Date: 20170829
  Transmission Date: 20171127
  Serious: Yes (Other)
  Sender: FDA-Public Use
  Company Number: FR-SEBELA IRELAND LIMITED-2017SEB00391

PATIENT
  Sex: Male

DRUGS (5)
  1. ANTIBIOTICS [Concomitant]
     Active Substance: UNSPECIFIED INGREDIENT
     Route: 065
  2. HYDROCORTISONE. [Suspect]
     Active Substance: HYDROCORTISONE
     Dosage: 0.5 MG/KG, 1X/DAY FOR 3 DAYS
  3. FLUCONAZOLE. [Concomitant]
     Active Substance: FLUCONAZOLE
     Route: 065
  4. HYDROCORTISONE. [Suspect]
     Active Substance: HYDROCORTISONE
     Indication: PROPHYLAXIS
     Dosage: 0.5 MG/KG, 2X/DAY FOR 7 DAYS
     Route: 065
  5. SURFACTANT [Concomitant]
     Route: 065

REACTIONS (1)
  - Neonatal infection [Unknown]
